FAERS Safety Report 19750442 (Version 1)
Quarter: 2021Q3

REPORT INFORMATION
  Report Type: Spontaneous
  Country: US (occurrence: US)
  Receive Date: 20210826
  Receipt Date: 20210826
  Transmission Date: 20211014
  Serious: Yes (Hospitalization)
  Sender: FDA-Public Use
  Company Number: None

PATIENT
  Age: 83 Year
  Sex: Male

DRUGS (13)
  1. HYDRALAZINE [Concomitant]
     Active Substance: HYDRALAZINE HYDROCHLORIDE
  2. FUROSEMIDE. [Concomitant]
     Active Substance: FUROSEMIDE
  3. TRAZODONE [Concomitant]
     Active Substance: TRAZODONE HYDROCHLORIDE
  4. ISOSORBIDE. [Concomitant]
     Active Substance: ISOSORBIDE
  5. DONEPEZIL. [Concomitant]
     Active Substance: DONEPEZIL
  6. ALLOPURINOL. [Concomitant]
     Active Substance: ALLOPURINOL
  7. AMLODIPINE [Concomitant]
     Active Substance: AMLODIPINE BESYLATE
  8. FLONASE [Concomitant]
     Active Substance: FLUTICASONE PROPIONATE
  9. TAMSULOSIN [Concomitant]
     Active Substance: TAMSULOSIN
  10. DRONABINOL. [Concomitant]
     Active Substance: DRONABINOL
  11. ERLEADA [Suspect]
     Active Substance: APALUTAMIDE
     Indication: PROSTATE CANCER
     Route: 048
     Dates: start: 20200212
  12. CARVEDILOL. [Concomitant]
     Active Substance: CARVEDILOL
  13. ATORVASTATIN [Concomitant]
     Active Substance: ATORVASTATIN

REACTIONS (1)
  - Urinary tract infection [None]
